FAERS Safety Report 9117941 (Version 2)
Quarter: 2013Q1

REPORT INFORMATION
  Report Type: Spontaneous
  Country: CA (occurrence: CA)
  Receive Date: 20130226
  Receipt Date: 20130327
  Transmission Date: 20140127
  Serious: Yes (Hospitalization, Other)
  Sender: FDA-Public Use
  Company Number: CA-AMGEN-CANSP2012083925

PATIENT
  Age: 60 Year
  Sex: Female
  Weight: 47.73 kg

DRUGS (1)
  1. PROLIA [Suspect]
     Indication: OSTEOPOROSIS
     Dosage: 60 MG, UNK
     Route: 058
     Dates: start: 20120120

REACTIONS (4)
  - Road traffic accident [Unknown]
  - Fibula fracture [Unknown]
  - Tibia fracture [Unknown]
  - Gait disturbance [Unknown]
